FAERS Safety Report 5637968-1 (Version None)
Quarter: 2008Q1

REPORT INFORMATION
  Report Type: 
  Country: None (occurrence: None)
  Receive Date: 20080226
  Receipt Date: 20080125
  Transmission Date: 20080703
  Serious: No
  Sender: FDA-Public Use
  Company Number: US-BAYER-200812660NA

PATIENT
  Age: 42 Year
  Sex: Female
  Weight: 40 kg

DRUGS (3)
  1. MIRENA [Suspect]
     Indication: CONTRACEPTION
     Route: 015
     Dates: start: 20071101
  2. SYNTHROID [Concomitant]
     Indication: HYPOTHYROIDISM
  3. IUD NOS [Concomitant]

REACTIONS (3)
  - MENORRHAGIA [None]
  - MENSTRUATION IRREGULAR [None]
  - POLYMENORRHOEA [None]
